FAERS Safety Report 8303139-3 (Version None)
Quarter: 2012Q2

REPORT INFORMATION
  Report Type: 
  Country: None (occurrence: None)
  Receive Date: 20120423
  Receipt Date: 20120312
  Transmission Date: 20120825
  Serious: Yes (Hospitalization)
  Sender: FDA-Public Use
  Company Number: 2008BI011836

PATIENT
  Age: 48 Year
  Sex: Female

DRUGS (5)
  1. PRAZEPAM [Concomitant]
     Indication: ANXIETY
  2. LEVOTHYROXINE SODIUM [Concomitant]
     Indication: THYROIDECTOMY
  3. AVONEX [Suspect]
     Indication: RELAPSING-REMITTING MULTIPLE SCLEROSIS
     Route: 030
     Dates: start: 20020101, end: 20031001
  4. AVONEX [Suspect]
     Route: 030
     Dates: start: 20031001
  5. IMOVANE [Concomitant]
     Indication: INSOMNIA

REACTIONS (1)
  - HAEMOPTYSIS [None]
